FAERS Safety Report 21418696 (Version 16)
Quarter: 2024Q2

REPORT INFORMATION
  Report Type: Report from Study
  Country: CO (occurrence: CO)
  Receive Date: 20221006
  Receipt Date: 20240610
  Transmission Date: 20240716
  Serious: Yes (Life-Threatening, Hospitalization, Other)
  Sender: FDA-Public Use
  Company Number: CO-NOVARTISPH-NVSC2022CO225484

PATIENT
  Age: 5 Year
  Sex: Female
  Weight: 18 kg

DRUGS (10)
  1. ELTROMBOPAG OLAMINE [Suspect]
     Active Substance: ELTROMBOPAG OLAMINE
     Indication: Immune thrombocytopenia
     Dosage: UNK
     Route: 048
  2. ELTROMBOPAG OLAMINE [Suspect]
     Active Substance: ELTROMBOPAG OLAMINE
     Dosage: 25 MG, QD
     Route: 048
     Dates: start: 20220824
  3. ELTROMBOPAG OLAMINE [Suspect]
     Active Substance: ELTROMBOPAG OLAMINE
     Dosage: 25 MG, QD
     Route: 048
     Dates: start: 202209
  4. ELTROMBOPAG OLAMINE [Suspect]
     Active Substance: ELTROMBOPAG OLAMINE
     Dosage: UNK, QD (25 MG ONE DAY AND A TABLET OF 50 MG THE OTHER DAY)
     Route: 048
     Dates: start: 2022
  5. ELTROMBOPAG OLAMINE [Suspect]
     Active Substance: ELTROMBOPAG OLAMINE
     Dosage: 25 MG, QD (ONE DAY, NEXT DAY CONSUMES 50 MG,15 DAYS AGO)
     Route: 048
     Dates: start: 202307
  6. ELTROMBOPAG OLAMINE [Suspect]
     Active Substance: ELTROMBOPAG OLAMINE
     Dosage: 50 MG, QD
     Route: 048
  7. ELTROMBOPAG OLAMINE [Suspect]
     Active Substance: ELTROMBOPAG OLAMINE
     Dosage: 2 DOSAGE FORM, QD (2 TABLETS OF 25 MG)
     Route: 048
  8. ELTROMBOPAG OLAMINE [Suspect]
     Active Substance: ELTROMBOPAG OLAMINE
     Dosage: 25 MG, QD (IN DEC)
     Route: 048
  9. ELTROMBOPAG OLAMINE [Suspect]
     Active Substance: ELTROMBOPAG OLAMINE
     Dosage: UNK, QD (25 MG ONE DAY AND 50 MG THE NEXT DAY)
     Route: 048
     Dates: end: 202403
  10. ELTROMBOPAG OLAMINE [Suspect]
     Active Substance: ELTROMBOPAG OLAMINE
     Dosage: UNK, UNKNOWN
     Route: 048

REACTIONS (11)
  - Platelet count abnormal [Recovered/Resolved]
  - Contusion [Unknown]
  - Headache [Unknown]
  - Viral infection [Unknown]
  - Pyrexia [Unknown]
  - Platelet count decreased [Not Recovered/Not Resolved]
  - Vomiting [Unknown]
  - Bacterial infection [Not Recovered/Not Resolved]
  - Disease recurrence [Recovered/Resolved]
  - Product use issue [Unknown]
  - Influenza [Unknown]

NARRATIVE: CASE EVENT DATE: 20240401
